FAERS Safety Report 9706248 (Version 1)
Quarter: 2013Q4

REPORT INFORMATION
  Report Type: Spontaneous
  Country: US (occurrence: US)
  Receive Date: 20131125
  Receipt Date: 20131125
  Transmission Date: 20140711
  Serious: No
  Sender: FDA-Public Use
  Company Number: US-009507513-1311USA005287

PATIENT
  Age: 18 Year
  Sex: Female

DRUGS (1)
  1. NEXPLANON [Suspect]
     Indication: CONTRACEPTION
     Dosage: UNK; IMPLANT
     Route: 059
     Dates: start: 201307

REACTIONS (4)
  - Haemorrhage [Unknown]
  - Abdominal pain [Unknown]
  - Weight increased [Unknown]
  - Medical device complication [Unknown]
